FAERS Safety Report 8407220-X (Version None)
Quarter: 2012Q2

REPORT INFORMATION
  Report Type: 
  Country: None (occurrence: None)
  Receive Date: 20120529
  Receipt Date: 20091019
  Transmission Date: 20120825
  Serious: Yes (Life-Threatening, Hospitalization)
  Sender: FDA-Public Use
  Company Number: 02100-JPN-07-0210

PATIENT
  Age: 72 Year
  Sex: Male
  Weight: 61.8 kg

DRUGS (4)
  1. OLMETEC (OMESARTAN MEDOXOMIL) [Concomitant]
  2. APLACE (TROXIPIDE) [Suspect]
  3. LOXONIN (LOXOPROFEN SODIUM) [Concomitant]
  4. PLETAL [Suspect]
     Indication: CEREBRAL INFARCTION
     Dosage: 100 MG, BID
     Route: 048
     Dates: start: 20060614, end: 20070417

REACTIONS (5)
  - SHOCK HAEMORRHAGIC [None]
  - TOOTH EXTRACTION [None]
  - VOMITING [None]
  - POST PROCEDURAL HAEMORRHAGE [None]
  - DEMENTIA [None]
